FAERS Safety Report 14889919 (Version 1)
Quarter: 2018Q2

REPORT INFORMATION
  Report Type: Report from Study
  Country: US (occurrence: US)
  Receive Date: 20180514
  Receipt Date: 20180514
  Transmission Date: 20180711
  Serious: Yes (Other)
  Sender: FDA-Public Use
  Company Number: US-TEVA-2018-US-891230

PATIENT
  Sex: Female

DRUGS (1)
  1. COPAXONE [Suspect]
     Active Substance: GLATIRAMER ACETATE
     Indication: MULTIPLE SCLEROSIS
     Dosage: 120 MILLIGRAM DAILY;
     Route: 058
     Dates: start: 20180314

REACTIONS (3)
  - Injection site mass [Not Recovered/Not Resolved]
  - Osteoporosis [Not Recovered/Not Resolved]
  - Hemiparesis [Not Recovered/Not Resolved]
